FAERS Safety Report 5077000-4 (Version None)
Quarter: 2006Q3

REPORT INFORMATION
  Report Type: 
  Country: None (occurrence: None)
  Receive Date: 20060810
  Receipt Date: 20060512
  Transmission Date: 20061208
  Serious: No
  Sender: FDA-Public Use
  Company Number: 2004SP000303

PATIENT
  Sex: Male

DRUGS (3)
  1. PAXIL [Suspect]
     Indication: DRUG USE FOR UNKNOWN INDICATION
     Route: 065
  2. XOPENEX [Suspect]
     Indication: DRUG USE FOR UNKNOWN INDICATION
     Dosage: .5MGML UNKNOWN
     Route: 055
  3. XANAX [Concomitant]

REACTIONS (2)
  - COLD SWEAT [None]
  - TREMOR [None]
